FAERS Safety Report 16553950 (Version 2)
Quarter: 2019Q4

REPORT INFORMATION
  Report Type: Spontaneous
  Country: US (occurrence: US)
  Receive Date: 20190710
  Receipt Date: 20191125
  Transmission Date: 20200122
  Serious: No
  Sender: FDA-Public Use
  Company Number: US-ALLERGAN-1846445US

PATIENT
  Sex: Male
  Weight: 94.8 kg

DRUGS (9)
  1. ARICEPT [Suspect]
     Active Substance: DONEPEZIL HYDROCHLORIDE
     Indication: PRODUCT USED FOR UNKNOWN INDICATION
     Dosage: 23 MG, QD
     Dates: end: 20161129
  2. HUMALOG MIX [Concomitant]
     Active Substance: INSULIN LISPRO
     Dosage: 46 UNITS BEFORE BREAKFAST AND 22 UNITS BEFORE SUPPER
  3. AVEENO SOOTHING BATH [Concomitant]
     Dosage: APPLY 1 PACKET DAILY, SOAKED IN TEPID TUB WITH DISSOLVED MEDICATION
     Route: 061
  4. LIPITOR [Concomitant]
     Active Substance: ATORVASTATIN CALCIUM
     Dosage: 10 MG, UNK
     Route: 048
  5. NAMENDA XR [Suspect]
     Active Substance: MEMANTINE HYDROCHLORIDE
     Indication: DEMENTIA
     Dosage: 28 MG, QD
     Route: 048
     Dates: start: 20150601, end: 20161129
  6. JANUMET [Concomitant]
     Active Substance: METFORMIN HYDROCHLORIDE\SITAGLIPTIN PHOSPHATE
     Dosage: ONE 50/1000MG TABLET DAILY
     Route: 048
  7. INVOKANA [Concomitant]
     Active Substance: CANAGLIFLOZIN
     Dosage: 300 MG, QD
     Route: 048
  8. VISTARIL [Concomitant]
     Active Substance: HYDROXYZINE PAMOATE
  9. ARICEPT [Suspect]
     Active Substance: DONEPEZIL HYDROCHLORIDE
     Dosage: 10 MG, QPM
     Dates: start: 20150715

REACTIONS (2)
  - Incorrect dose administered [Unknown]
  - Product dose omission [Unknown]
